FAERS Safety Report 25286821 (Version 2)
Quarter: 2025Q3

REPORT INFORMATION
  Report Type: Spontaneous
  Country: EU (occurrence: EU)
  Receive Date: 20250509
  Receipt Date: 20250929
  Transmission Date: 20251020
  Serious: Yes (Other)
  Sender: AUROBINDO
  Company Number: EU-AstraZeneca-CH-00795852A

PATIENT
  Sex: Female

DRUGS (6)
  1. CARBOPLATIN [Suspect]
     Active Substance: CARBOPLATIN
     Indication: Endometrial cancer recurrent
     Route: 065
  2. CARBOPLATIN [Suspect]
     Active Substance: CARBOPLATIN
     Route: 065
     Dates: start: 20250409
  3. PACLITAXEL [Suspect]
     Active Substance: PACLITAXEL
     Indication: Endometrial cancer recurrent
     Route: 065
  4. PACLITAXEL [Suspect]
     Active Substance: PACLITAXEL
     Route: 065
     Dates: start: 20250409
  5. IMFINZI [Suspect]
     Active Substance: DURVALUMAB
     Indication: Endometrial cancer recurrent
     Route: 042
     Dates: start: 20241217
  6. IMFINZI [Suspect]
     Active Substance: DURVALUMAB
     Route: 042
     Dates: start: 20250508, end: 20250710

REACTIONS (3)
  - Thrombocytopenia [Unknown]
  - Malignant neoplasm progression [Unknown]
  - Anaemia [Unknown]
